FAERS Safety Report 22953459 (Version 3)
Quarter: 2025Q3

REPORT INFORMATION
  Report Type: Report from Study
  Country: BR (occurrence: BR)
  Receive Date: 20230918
  Receipt Date: 20250725
  Transmission Date: 20251021
  Serious: No
  Sender: TAKEDA
  Company Number: BR-TAKEDA-2023TUS049465

PATIENT
  Age: 35 Year
  Sex: Female

DRUGS (1)
  1. VEDOLIZUMAB [Suspect]
     Active Substance: VEDOLIZUMAB
     Indication: Crohn^s disease

REACTIONS (2)
  - Inappropriate schedule of product administration [Unknown]
  - Influenza [Not Recovered/Not Resolved]

NARRATIVE: CASE EVENT DATE: 20250624
